FAERS Safety Report 16951217 (Version 1)
Quarter: 2019Q4

REPORT INFORMATION
  Report Type: Spontaneous
  Country: CA (occurrence: CA)
  Receive Date: 20191023
  Receipt Date: 20191023
  Transmission Date: 20200122
  Serious: Yes (Hospitalization, Other)
  Sender: FDA-Public Use
  Company Number: CA-PFIZER INC-2019453366

PATIENT
  Age: 40 Year
  Sex: Female
  Weight: 88 kg

DRUGS (5)
  1. ENOXAPARIN [Concomitant]
     Active Substance: ENOXAPARIN
     Dosage: UNK
  2. RANITIDINE. [Concomitant]
     Active Substance: RANITIDINE
     Dosage: UNK
  3. DILANTIN [Suspect]
     Active Substance: PHENYTOIN
     Indication: POST PROCEDURAL COMPLICATION
  4. DILANTIN [Suspect]
     Active Substance: PHENYTOIN
     Indication: SEIZURE
     Dosage: 200 MG, 2X/DAY
     Route: 048
  5. DEXAMETHASONE. [Concomitant]
     Active Substance: DEXAMETHASONE
     Dosage: UNK

REACTIONS (7)
  - Pharyngeal swelling [Recovering/Resolving]
  - Pyrexia [Recovering/Resolving]
  - Neutropenia [Recovering/Resolving]
  - Angioedema [Recovering/Resolving]
  - Rash [Recovering/Resolving]
  - Eosinophilia [Recovering/Resolving]
  - Swollen tongue [Recovering/Resolving]
